FAERS Safety Report 7085443-2 (Version None)
Quarter: 2010Q4

REPORT INFORMATION
  Report Type: 
  Country: None (occurrence: None)
  Receive Date: 20101105
  Receipt Date: 20101101
  Transmission Date: 20110411
  Serious: Yes (Other)
  Sender: FDA-Public Use
  Company Number: NL-PFIZER INC-2010114455

PATIENT
  Age: 80 Year
  Sex: Male
  Weight: 86 kg

DRUGS (5)
  1. REVATIO [Suspect]
     Indication: PULMONARY HYPERTENSION
     Dosage: 20 MG, UNK
     Route: 048
     Dates: start: 20100718, end: 20100904
  2. LASIX [Concomitant]
     Indication: CARDIAC FAILURE
     Dosage: 40 MG, UNK
     Route: 048
  3. ACETYLSALICYLIC ACID [Concomitant]
     Indication: PULMONARY ARTERIAL HYPERTENSION
     Dosage: 80 MG, UNK
     Route: 048
  4. AMLODIPINE [Concomitant]
     Indication: ANGINA PECTORIS
  5. ATENOLOL [Concomitant]
     Indication: ANGINA PECTORIS
     Dosage: 50 MG, UNK
     Route: 048

REACTIONS (3)
  - MALAISE [None]
  - NAUSEA [None]
  - VISION BLURRED [None]
